FAERS Safety Report 4853591-0 (Version None)
Quarter: 2005Q4

REPORT INFORMATION
  Report Type: 
  Country: None (occurrence: None)
  Receive Date: 20051214
  Receipt Date: 20051027
  Transmission Date: 20060501
  Serious: Yes (Other)
  Sender: FDA-Public Use
  Company Number: PHBS2005SE15995

PATIENT
  Age: 70 Year
  Sex: Male

DRUGS (4)
  1. TEGRETOL [Suspect]
     Dosage: 400 MG/DAY
     Route: 048
     Dates: start: 20040209
  2. KEPPRA [Concomitant]
     Dosage: 1000 MG/DAY
     Route: 065
  3. ENALAPRIL [Concomitant]
     Dosage: 5 MG/DAY
     Route: 065
  4. METOPROLOL SUCCINATE [Concomitant]
     Dosage: 100 MG/DAY
     Route: 065

REACTIONS (9)
  - AMNESIA [None]
  - CONSTIPATION [None]
  - COORDINATION ABNORMAL [None]
  - DIPLOPIA [None]
  - DIZZINESS [None]
  - DRY MOUTH [None]
  - DYSKINESIA [None]
  - FATIGUE [None]
  - RASH [None]
